FAERS Safety Report 8866279 (Version 3)
Quarter: 2013Q1

REPORT INFORMATION
  Report Type: Spontaneous
  Country: US (occurrence: US)
  Receive Date: 20121025
  Receipt Date: 20130201
  Transmission Date: 20140127
  Serious: No
  Sender: FDA-Public Use
  Company Number: US-009507513-1210USA005354

PATIENT
  Age: 28 Year
  Sex: Male
  Weight: 81.63 kg

DRUGS (2)
  1. CLARITIN [Suspect]
     Indication: RHINITIS ALLERGIC
     Dosage: UNK, QD
     Route: 048
     Dates: start: 20120719, end: 20120819
  2. ONE-A-DAY ESSENTIAL VITAMINS [Concomitant]
     Indication: VITAMIN SUPPLEMENTATION

REACTIONS (2)
  - Rash maculo-papular [Not Recovered/Not Resolved]
  - Pruritus [Not Recovered/Not Resolved]
